FAERS Safety Report 8124563-8 (Version None)
Quarter: 2012Q1

REPORT INFORMATION
  Report Type: 
  Country: None (occurrence: None)
  Receive Date: 20120209
  Receipt Date: 20120202
  Transmission Date: 20120608
  Serious: Yes (Death, Life-Threatening, Hospitalization)
  Sender: FDA-Public Use
  Company Number: DE-SANOFI-AVENTIS-2011SA069806

PATIENT
  Sex: Male
  Weight: 50 kg

DRUGS (9)
  1. DOCETAXEL [Suspect]
     Route: 041
     Dates: start: 20110616, end: 20110616
  2. CISPLATIN [Suspect]
     Route: 041
     Dates: start: 20110930, end: 20110930
  3. DURAGESIC-100 [Concomitant]
     Indication: PAIN
     Route: 065
     Dates: start: 20110504
  4. CETUXIMAB [Suspect]
     Route: 041
     Dates: start: 20110929, end: 20110929
  5. CISPLATIN [Suspect]
     Route: 041
     Dates: start: 20110616, end: 20110616
  6. CETUXIMAB [Suspect]
     Route: 041
     Dates: start: 20110615, end: 20110615
  7. FLUOROURACIL [Suspect]
     Route: 041
     Dates: start: 20110930, end: 20110930
  8. DOCETAXEL [Suspect]
     Route: 041
     Dates: start: 20110930, end: 20110930
  9. FLUOROURACIL [Suspect]
     Route: 041
     Dates: start: 20110616, end: 20110616

REACTIONS (2)
  - GENERAL PHYSICAL HEALTH DETERIORATION [None]
  - DEATH [None]
